FAERS Safety Report 9186933 (Version 1)
Quarter: 2013Q1

REPORT INFORMATION
  Report Type: Spontaneous
  Country: CH (occurrence: CH)
  Receive Date: 20130325
  Receipt Date: 20130325
  Transmission Date: 20140127
  Serious: Yes (Other)
  Sender: FDA-Public Use
  Company Number: CH-GLAXOSMITHKLINE-B0841750A

PATIENT
  Age: 79 Year
  Sex: Male
  Weight: 74 kg

DRUGS (7)
  1. VALTREX [Suspect]
     Indication: HERPES VIRUS INFECTION
     Dosage: 500MG TWICE PER DAY
     Route: 048
     Dates: start: 20120925, end: 20120927
  2. IMUREK [Suspect]
     Indication: SARCOIDOSIS
     Dosage: 50MG THREE TIMES PER DAY
     Route: 048
  3. PREDNISON [Suspect]
     Indication: SARCOIDOSIS
     Dosage: 20MG PER DAY
     Route: 048
  4. LAMICTAL [Concomitant]
     Indication: EPILEPSY
     Dosage: 50MG TWICE PER DAY
     Route: 048
  5. GLUCOPHAGE [Concomitant]
     Indication: DIABETES MELLITUS
     Dosage: 1350MG PER DAY
     Route: 048
  6. NEXIUM MUPS [Concomitant]
     Dosage: 40MG PER DAY
     Route: 048
  7. SEVIKAR [Concomitant]
     Indication: ESSENTIAL HYPERTENSION
     Route: 048

REACTIONS (2)
  - Speech disorder [Recovered/Resolved]
  - Herpes virus infection [Recovering/Resolving]
